FAERS Safety Report 26168589 (Version 1)
Quarter: 2025Q4

REPORT INFORMATION
  Report Type: Spontaneous
  Country: PK (occurrence: PK)
  Receive Date: 20251217
  Receipt Date: 20251217
  Transmission Date: 20260118
  Serious: Yes (Other)
  Sender: PHARMOBEDIENT CONSULTING, LLC
  Company Number: PK-Pharmobedient-000671

PATIENT
  Age: 25 Year
  Sex: Male

DRUGS (2)
  1. AMIODARONE HYDROCHLORIDE [Suspect]
     Active Substance: AMIODARONE HYDROCHLORIDE
     Indication: Ventricular fibrillation
     Route: 048
  2. PROPRANOLOL [Suspect]
     Active Substance: PROPRANOLOL HYDROCHLORIDE
     Indication: Ventricular fibrillation

REACTIONS (4)
  - Device inappropriate shock delivery [Unknown]
  - Drug ineffective [Unknown]
  - Bradycardia [Unknown]
  - Ventricular extrasystoles [Not Recovered/Not Resolved]
